FAERS Safety Report 7818491 (Version 8)
Quarter: 2014Q1

REPORT INFORMATION
  Report Type: Report from Study
  Country: US (occurrence: US)
  Receive Date: 20110218
  Receipt Date: 20140327
  Transmission Date: 20141002
  Serious: Yes (Hospitalization)
  Sender: FDA-Public Use
  Company Number: US-ALEXION-A201100175

PATIENT
  Age: 36 Year
  Sex: Male

DRUGS (9)
  1. SOLIRIS [Suspect]
     Indication: PAROXYSMAL NOCTURNAL HAEMOGLOBINURIA
     Dosage: 900 MG, Q10 DAYS
     Route: 042
     Dates: end: 20110122
  2. SOLIRIS [Suspect]
     Dosage: 600 MG, QW
     Route: 042
     Dates: start: 20110201
  3. LASIX                              /00032601/ [Concomitant]
     Dosage: 40 MG, QD
     Route: 048
  4. SPIRONOLACTONE [Concomitant]
     Dosage: 100 MG, QD
  5. PEPCID                             /00706001/ [Concomitant]
     Dosage: 20 MG, QD
     Route: 048
  6. FERROUS SULFATE [Concomitant]
     Dosage: UNK
  7. FOLIC ACID [Concomitant]
     Dosage: 1 MG, QD
     Route: 048
  8. COUMADIN                           /00014802/ [Concomitant]
     Dosage: 5 MG, QD
     Route: 048
  9. HEPATITIS VACCINES [Concomitant]
     Indication: IMMUNISATION
     Dosage: UNK
     Dates: start: 201104, end: 201104

REACTIONS (7)
  - Abdominal wall disorder [Recovered/Resolved]
  - Dehydration [Unknown]
  - Ascites [Recovering/Resolving]
  - Condition aggravated [Recovering/Resolving]
  - Oedema peripheral [Unknown]
  - Confusional state [Unknown]
  - Hernia pain [Unknown]
